FAERS Safety Report 6022261-8 (Version None)
Quarter: 2008Q4

REPORT INFORMATION
  Report Type: 
  Country: None (occurrence: None)
  Receive Date: 20081230
  Receipt Date: 20081218
  Transmission Date: 20090506
  Serious: Yes (Hospitalization, Other)
  Sender: FDA-Public Use
  Company Number: US-RANBAXY-2008US-20166

PATIENT

DRUGS (3)
  1. ISOTRETINOIN [Suspect]
     Indication: ACNE
     Dosage: 40 MG, BID
     Route: 048
     Dates: start: 20080701, end: 20080801
  2. CLARAVIS [Suspect]
     Indication: ACNE
     Dosage: 40 MG, BID
     Route: 048
     Dates: start: 20081023, end: 20081101
  3. AMNESTEEM [Suspect]
     Indication: ACNE
     Dosage: 40.000000 MG, BID
     Route: 048
     Dates: start: 20080908

REACTIONS (1)
  - SUICIDAL IDEATION [None]
